FAERS Safety Report 16907677 (Version 5)
Quarter: 2020Q1

REPORT INFORMATION
  Report Type: Report from Study
  Country: US (occurrence: US)
  Receive Date: 20191011
  Receipt Date: 20200204
  Transmission Date: 20200409
  Serious: Yes (Death, Life-Threatening, Hospitalization)
  Sender: FDA-Public Use
  Company Number: US-ROCHE-2412427

PATIENT
  Age: 72 Year
  Sex: Male
  Weight: 85.7 kg

DRUGS (7)
  1. HUMALOG [Concomitant]
     Active Substance: INSULIN LISPRO
  2. VENETOCLAX. [Suspect]
     Active Substance: VENETOCLAX
     Indication: CHRONIC LYMPHOCYTIC LEUKAEMIA
     Dosage: 20 MG PO QD DAYS 1-7 CYCLE 3, 50 MG PO QD DAYS 8-14, CYCLE 3, 100 MG PO QD?DAYS 15-21, CYCLE 3, 200
     Route: 048
  3. IBRUTINIB [Suspect]
     Active Substance: IBRUTINIB
     Dosage: MOST RECENT DOSE (LAST DOSE) OF IBRUTINIB : 30/SEP/2019
     Route: 048
     Dates: start: 20190910
  4. DEXAMETHASONE. [Concomitant]
     Active Substance: DEXAMETHASONE
  5. OBINUTUZUMAB. [Suspect]
     Active Substance: OBINUTUZUMAB
     Indication: CHRONIC LYMPHOCYTIC LEUKAEMIA
     Dosage: 100 MG IV ON C1D1, 900 MG IV ON C1D2, 1000 MG IV ON C1D8 + C1D15, C2-6D1?C1D1 8/27/19: 100MG, C1D2 8
     Route: 042
     Dates: start: 20190917
  6. HYDROCORTISONE. [Concomitant]
     Active Substance: HYDROCORTISONE
  7. IBRUTINIB [Suspect]
     Active Substance: IBRUTINIB
     Indication: CHRONIC LYMPHOCYTIC LEUKAEMIA
     Dosage: MOST RECENT DOSE (LAST DOSE) OF IBRUTINIB : 03/OCT/2019 (CYCLE 1, DAY 7)
     Route: 048
     Dates: start: 20190827, end: 20190902

REACTIONS (10)
  - Atrial fibrillation [Unknown]
  - Cerebrovascular accident [Recovered/Resolved]
  - Hyperglycaemia [Recovered/Resolved]
  - Myocardial infarction [Unknown]
  - Pneumonia [Unknown]
  - Sepsis [Unknown]
  - Muscular weakness [Unknown]
  - Supraventricular tachycardia [Recovered/Resolved]
  - Acute kidney injury [Unknown]
  - Death [Fatal]

NARRATIVE: CASE EVENT DATE: 20190903
